FAERS Safety Report 6772506-1 (Version None)
Quarter: 2010Q2

REPORT INFORMATION
  Report Type: 
  Country: None (occurrence: None)
  Receive Date: 20100616
  Receipt Date: 20091110
  Transmission Date: 20101027
  Serious: No
  Sender: FDA-Public Use
  Company Number: US-ASTRAZENECA-2009SE08000

PATIENT
  Age: 25896 Day
  Sex: Female
  Weight: 74.8 kg

DRUGS (5)
  1. PULMICORT RESPULES [Suspect]
     Dosage: 0.5 MG/ML TWO TIMES A DAY
     Route: 055
     Dates: start: 20090811
  2. PULMICORT RESPULES [Suspect]
     Dosage: 0.5 MG/ML DAILY
     Route: 055
  3. DILANTIN [Concomitant]
  4. ZOCOR [Concomitant]
  5. ZYRTEC [Concomitant]

REACTIONS (3)
  - BURNING SENSATION [None]
  - INCORRECT ROUTE OF DRUG ADMINISTRATION [None]
  - NASAL DISCOMFORT [None]
